FAERS Safety Report 5588632-9 (Version None)
Quarter: 2008Q1

REPORT INFORMATION
  Report Type: 
  Country: None (occurrence: None)
  Receive Date: 20080111
  Receipt Date: 20080103
  Transmission Date: 20080703
  Serious: Yes (Other)
  Sender: FDA-Public Use
  Company Number: CA-PFIZER INC-2007108103

PATIENT
  Sex: Female
  Weight: 99.8 kg

DRUGS (13)
  1. CHANTIX [Suspect]
     Indication: SMOKING CESSATION THERAPY
     Route: 048
  2. OXEZE [Concomitant]
  3. PULMICORT [Concomitant]
  4. BRICANYL [Concomitant]
  5. CIPRALEX [Concomitant]
     Indication: DEPRESSION
  6. DESYREL [Concomitant]
  7. NOVO-TRAZODONE [Concomitant]
     Indication: SLEEP DISORDER
  8. ZOPICLONE [Concomitant]
     Indication: SLEEP DISORDER
  9. VALSARTAN [Concomitant]
     Indication: HYPERTENSION
  10. VITAMIN D [Concomitant]
  11. CALCIUM GLUCONATE [Concomitant]
  12. OMEGA 3 [Concomitant]
  13. VITAMINS [Concomitant]

REACTIONS (2)
  - ASTHMA [None]
  - FATIGUE [None]
